FAERS Safety Report 5387441-3 (Version None)
Quarter: 2007Q3

REPORT INFORMATION
  Report Type: 
  Country: None (occurrence: None)
  Receive Date: 20070716
  Receipt Date: 20070710
  Transmission Date: 20080115
  Serious: Yes (Hospitalization)
  Sender: FDA-Public Use
  Company Number: US-AVENTIS-200619573US

PATIENT
  Age: 26 Year
  Sex: Female

DRUGS (1)
  1. ALLEGRA D 24 HOUR [Suspect]
     Dosage: DOSE: 240/180
     Route: 048
     Dates: start: 20061121, end: 20061121

REACTIONS (3)
  - CHEST PAIN [None]
  - DYSPHAGIA [None]
  - FOREIGN BODY TRAUMA [None]
